FAERS Safety Report 7225840-5 (Version None)
Quarter: 2011Q1

REPORT INFORMATION
  Report Type: 
  Country: None (occurrence: None)
  Receive Date: 20110107
  Receipt Date: 20110107
  Transmission Date: 20110831
  Serious: Yes (Hospitalization)
  Sender: FDA-Public Use
  Company Number: None

PATIENT
  Sex: Female
  Weight: 78.4723 kg

DRUGS (1)
  1. XOLAIR [Suspect]
     Indication: ASTHMA
     Dosage: 300MG Q 2 WK IM
     Route: 030
     Dates: start: 20100401, end: 20101201

REACTIONS (4)
  - CAESAREAN SECTION [None]
  - LOBAR PNEUMONIA [None]
  - DRUG EXPOSURE DURING PREGNANCY [None]
  - NO THERAPEUTIC RESPONSE [None]
